FAERS Safety Report 5043174-4 (Version None)
Quarter: 2006Q2

REPORT INFORMATION
  Report Type: 
  Country: None (occurrence: None)
  Receive Date: 20060628
  Receipt Date: 20060613
  Transmission Date: 20061013
  Serious: Yes (Other)
  Sender: FDA-Public Use
  Company Number: 2006S1005476

PATIENT
  Age: 56 Year
  Sex: Female

DRUGS (7)
  1. FENTANYL TRANSDERMAL SYSTEM [Suspect]
     Indication: BACK PAIN
     Dosage: 100 UG/HR; Q3D; TRANS; SEE IMAGE
     Route: 062
     Dates: start: 20060518, end: 20060610
  2. FENTANYL TRANSDERMAL SYSTEM [Suspect]
     Indication: NECK PAIN
     Dosage: 100 UG/HR; Q3D; TRANS; SEE IMAGE
     Route: 062
     Dates: start: 20060518, end: 20060610
  3. QUINAPRIL [Concomitant]
  4. INDAPAMIDE [Concomitant]
  5. POTASSIUM CHLORIDE [Concomitant]
  6. LIDOCAINE [Concomitant]
  7. ALPRAZOLAM [Concomitant]

REACTIONS (3)
  - DRUG INEFFECTIVE [None]
  - DRUG LEVEL DECREASED [None]
  - PHARMACEUTICAL PRODUCT COMPLAINT [None]
